FAERS Safety Report 23738083 (Version 1)
Quarter: 2024Q2

REPORT INFORMATION
  Report Type: Spontaneous
  Country: FR (occurrence: None)
  Receive Date: 20240412
  Receipt Date: 20240412
  Transmission Date: 20240716
  Serious: Yes (Other)
  Sender: FDA-Public Use
  Company Number: 2024A088363

PATIENT
  Age: 47 Day
  Sex: Female
  Weight: 2.9 kg

DRUGS (8)
  1. OMEPRAZOLE [Suspect]
     Active Substance: OMEPRAZOLE
     Indication: Gastrooesophageal reflux disease
     Dates: start: 202304, end: 20240114
  2. LAMICTAL [Suspect]
     Active Substance: LAMOTRIGINE
     Indication: Epilepsy
     Dates: start: 20230429, end: 20240114
  3. DOXYLAMINE SUCCINATE\PYRIDOXINE HYDROCHLORIDE [Suspect]
     Active Substance: DOXYLAMINE SUCCINATE\PYRIDOXINE HYDROCHLORIDE
     Indication: Sleep disorder
     Dates: start: 202304, end: 20240114
  4. LAMOTRIGINE [Concomitant]
     Active Substance: LAMOTRIGINE
  5. SPASFON [Concomitant]
  6. ATARAX [Concomitant]
     Active Substance: HYDROXYZINE HYDROCHLORIDE
     Dosage: AT THE END OF PREGNANCY
  7. NIFEDIPINE [Concomitant]
     Active Substance: NIFEDIPINE
  8. VENTOLIN [Concomitant]
     Active Substance: ALBUTEROL SULFATE

REACTIONS (2)
  - Congenital naevus [Not Recovered/Not Resolved]
  - Foetal exposure during pregnancy [Unknown]
